FAERS Safety Report 4693166-X (Version None)
Quarter: 2005Q2

REPORT INFORMATION
  Report Type: 
  Country: None (occurrence: None)
  Receive Date: 20050617
  Receipt Date: 20050606
  Transmission Date: 20051028
  Serious: Yes (Other)
  Sender: FDA-Public Use
  Company Number: FR-JNJFOC-20050603731

PATIENT
  Age: 70 Year
  Sex: Male

DRUGS (3)
  1. TRAMADOL HCL [Suspect]
     Indication: PAIN
     Route: 049
  2. SALICYLIC ACID [Concomitant]
     Route: 049
  3. PARACETAMOL [Concomitant]
     Route: 049

REACTIONS (3)
  - INTENTIONAL MISUSE [None]
  - OVERDOSE [None]
  - PROTHROMBIN TIME PROLONGED [None]
